FAERS Safety Report 8003274-3 (Version None)
Quarter: 2011Q4

REPORT INFORMATION
  Report Type: 
  Country: None (occurrence: None)
  Receive Date: 20111222
  Receipt Date: 20111220
  Transmission Date: 20120403
  Serious: Yes (Other)
  Sender: FDA-Public Use
  Company Number: PHHY2011JP111130

PATIENT
  Age: 69 Year
  Sex: Male

DRUGS (1)
  1. DIOVAN [Suspect]
     Indication: AORTIC DISSECTION
     Route: 048

REACTIONS (2)
  - CHOLECYSTITIS [None]
  - PLATELET COUNT DECREASED [None]
